FAERS Safety Report 7407013-6 (Version None)
Quarter: 2011Q2

REPORT INFORMATION
  Report Type: 
  Country: None (occurrence: None)
  Receive Date: 20110411
  Receipt Date: 20110405
  Transmission Date: 20111010
  Serious: No
  Sender: FDA-Public Use
  Company Number: US-PFIZER INC-2011075721

PATIENT
  Sex: Female

DRUGS (1)
  1. ZMAX [Suspect]
     Indication: RESPIRATORY DISORDER
     Dosage: UNK
     Route: 048
     Dates: start: 20110101, end: 20110101

REACTIONS (3)
  - MALAISE [None]
  - DIARRHOEA [None]
  - ABDOMINAL PAIN [None]
